FAERS Safety Report 10169673 (Version 1)
Quarter: 2014Q2

REPORT INFORMATION
  Report Type: Spontaneous
  Country: GB (occurrence: GB)
  Receive Date: 20140513
  Receipt Date: 20140513
  Transmission Date: 20141212
  Serious: Yes (Other)
  Sender: FDA-Public Use
  Company Number: GB-PFIZER INC-2014128604

PATIENT
  Age: 45 Year
  Sex: Male

DRUGS (1)
  1. LUSTRAL [Suspect]
     Indication: DEPRESSION
     Dosage: 100 MG TO 150 MG

REACTIONS (4)
  - Bipolar disorder [Unknown]
  - Mania [Unknown]
  - Abnormal behaviour [Unknown]
  - Anger [Unknown]
